FAERS Safety Report 25587257 (Version 1)
Quarter: 2025Q3

REPORT INFORMATION
  Report Type: Spontaneous
  Country: CA (occurrence: CA)
  Receive Date: 20250721
  Receipt Date: 20250721
  Transmission Date: 20251021
  Serious: Yes (Death, Other)
  Sender: AMGEN
  Company Number: CA-AMGEN-CANSP2025134889

PATIENT
  Age: 7 Year
  Sex: Female

DRUGS (6)
  1. RITUXIMAB [Suspect]
     Active Substance: RITUXIMAB
     Indication: Interstitial lung disease
     Route: 065
  2. RITUXIMAB [Suspect]
     Active Substance: RITUXIMAB
     Indication: Dermatomyositis
  3. TACROLIMUS [Concomitant]
     Active Substance: TACROLIMUS
  4. CYCLOPHOSPHAMIDE [Concomitant]
     Active Substance: CYCLOPHOSPHAMIDE
  5. ANAKINRA [Concomitant]
     Active Substance: ANAKINRA
     Indication: Haemophagocytic lymphohistiocytosis
  6. ECULIZUMAB [Concomitant]
     Active Substance: ECULIZUMAB

REACTIONS (8)
  - Death [Fatal]
  - Multiple organ dysfunction syndrome [Unknown]
  - Chest wall haematoma [Unknown]
  - Thrombocytopenia [Unknown]
  - Mucosal haemorrhage [Unknown]
  - Post procedural haemorrhage [Unknown]
  - Off label use [Unknown]
  - Hypofibrinogenaemia [Unknown]
